FAERS Safety Report 8237906-1 (Version None)
Quarter: 2012Q1

REPORT INFORMATION
  Report Type: 
  Country: None (occurrence: None)
  Receive Date: 20120327
  Receipt Date: 20120322
  Transmission Date: 20120608
  Serious: Yes (Hospitalization)
  Sender: FDA-Public Use
  Company Number: US-FRI-1000011082

PATIENT
  Age: 5 Decade
  Sex: Female

DRUGS (7)
  1. SAVELLA [Suspect]
     Indication: FIBROMYALGIA
     Dosage: TITRATED OVER A FEW WEEKS TO 100 MG DAILY
     Dates: start: 20090101, end: 20090101
  2. ENALAPRIL MALEATE [Concomitant]
     Dosage: 5 MG
  3. CARVEDILOL [Concomitant]
     Dosage: 6.25 MG
  4. SAVELLA [Suspect]
     Dosage: 100 MG
     Dates: start: 20090101
  5. ENALAPRIL MALEATE [Concomitant]
     Dosage: 20 MG
  6. CARVEDILOL [Concomitant]
     Dosage: 50 MG
  7. HYDROXYCHLOROQUINE SULFATE [Suspect]
     Indication: ARTHRALGIA
     Dosage: 400 MG

REACTIONS (3)
  - HYPERTENSION [None]
  - TACHYCARDIA [None]
  - CARDIOMYOPATHY [None]
